FAERS Safety Report 7836126-X (Version None)
Quarter: 2011Q4

REPORT INFORMATION
  Report Type: 
  Country: None (occurrence: None)
  Receive Date: 20111024
  Receipt Date: 20101025
  Transmission Date: 20120403
  Serious: Yes (Other)
  Sender: FDA-Public Use
  Company Number: US-ABBOTT-10P-163-0681535-00

PATIENT
  Age: 20 Year
  Sex: Female

DRUGS (1)
  1. LUPRON DEPOT [Suspect]
     Indication: PRODUCT USED FOR UNKNOWN INDICATION
     Dates: start: 20080801, end: 20090501

REACTIONS (4)
  - LOSS OF LIBIDO [None]
  - PAIN [None]
  - HOT FLUSH [None]
  - MOOD SWINGS [None]
